FAERS Safety Report 5892554-3 (Version None)
Quarter: 2008Q3

REPORT INFORMATION
  Report Type: 
  Country: None (occurrence: None)
  Receive Date: 20080923
  Receipt Date: 20080908
  Transmission Date: 20090109
  Serious: Yes (Disabling, Other)
  Sender: FDA-Public Use
  Company Number: GB-ELI_LILLY_AND_COMPANY-GB200809001924

PATIENT
  Sex: Male
  Weight: 62.5 kg

DRUGS (20)
  1. CIALIS [Suspect]
     Indication: ERECTILE DYSFUNCTION
     Dosage: 20 MG, UNKNOWN
     Route: 065
  2. VIAGRA [Concomitant]
     Indication: ERECTILE DYSFUNCTION
     Dosage: 100 MG, UNKNOWN
     Route: 065
  3. ALPROSTADIL [Concomitant]
  4. BETAMETHASONE VALERATE [Concomitant]
     Dosage: 0.1 %, 2/D
  5. CAVERJECT [Concomitant]
  6. CEFALEXIN [Concomitant]
     Dosage: 500 MG, 3/D
     Route: 065
  7. CHLORAMPHENICOL [Concomitant]
     Dosage: 0.5 %, 4/D
     Route: 065
  8. CHLORHEXIDINE GLUCONATE [Concomitant]
     Dosage: 0.25 %, UNKNOWN
     Route: 065
  9. CIPROFLOXACIN [Concomitant]
     Dosage: 500 MG, 2/D
     Route: 065
  10. ENZIRA [Concomitant]
     Dosage: 0.5 ML, UNKNOWN
     Route: 030
  11. FUSIDIC ACID [Concomitant]
     Indication: INFECTION
     Dosage: 2 %, DAILY (1/D)
     Route: 065
  12. IBUPROFEN [Concomitant]
     Dosage: 400 MG, 3/D
     Route: 065
  13. LIDOCAINE HYDROCHLORIDE [Concomitant]
     Dosage: 2 %, UNK
  14. LISINOPRIL [Concomitant]
     Dosage: UNK, DAILY (1/D)
     Route: 065
  15. MOMETASONE FUROATE [Concomitant]
     Dosage: 50 UG, 2/D
     Route: 065
  16. PARAFFIN [Concomitant]
  17. SILDENAFIL CITRATE [Concomitant]
     Dosage: 100 MG, AS NEEDED
     Route: 065
  18. TADALAFIL [Concomitant]
     Dosage: 20 MG, 2/W
     Route: 065
  19. TRIMETHOPRIM [Concomitant]
     Dosage: 200 MG, 2/D
     Route: 065
  20. VARDENAFIL [Concomitant]
     Dosage: 20 MG, UNK

REACTIONS (1)
  - DEAFNESS NEUROSENSORY [None]
